FAERS Safety Report 8574465-8 (Version None)
Quarter: 2012Q3

REPORT INFORMATION
  Report Type: 
  Country: None (occurrence: None)
  Receive Date: 20120806
  Receipt Date: 20111025
  Transmission Date: 20120928
  Serious: No
  Sender: FDA-Public Use
  Company Number: US-ABBOTT-11P-163-0869145-00

PATIENT
  Sex: Female
  Weight: 74.002 kg

DRUGS (7)
  1. LOVASTATIN [Concomitant]
     Indication: BLOOD CHOLESTEROL
  2. IRON [Concomitant]
     Indication: SUPPLEMENTATION THERAPY
  3. CLONAZEPAM [Concomitant]
     Indication: INSOMNIA
  4. METFORMIN HYDROCHLORIDE [Concomitant]
     Indication: DIABETES MELLITUS
  5. DEPAKOTE ER [Suspect]
     Indication: BIPOLAR I DISORDER
  6. LEXAPRO [Concomitant]
     Indication: BIPOLAR DISORDER
  7. NEXIUM [Concomitant]
     Indication: PRODUCT USED FOR UNKNOWN INDICATION

REACTIONS (2)
  - ALOPECIA [None]
  - VISUAL IMPAIRMENT [None]
